FAERS Safety Report 9723588 (Version 2)
Quarter: 2014Q1

REPORT INFORMATION
  Report Type: Spontaneous
  Country: GB (occurrence: GB)
  Receive Date: 20131202
  Receipt Date: 20140117
  Transmission Date: 20141002
  Serious: Yes (Hospitalization)
  Sender: FDA-Public Use
  Company Number: GB-PFIZER INC-2013340309

PATIENT
  Age: 50 Year
  Sex: Female
  Weight: 92 kg

DRUGS (21)
  1. INSPRA [Suspect]
     Indication: MYOCARDIAL INFARCTION
     Dosage: 25 MG, 1X/DAY
     Route: 048
  2. SPIRONOLACTONE [Suspect]
     Indication: CARDIAC FAILURE
     Dosage: 25 MG, 1X/DAY
     Route: 048
  3. FUROSEMIDE [Suspect]
     Indication: FLUID RETENTION
     Dosage: 80 MG, 2X/DAY
     Route: 048
     Dates: end: 20130730
  4. BISOPROLOL [Concomitant]
     Indication: MYOCARDIAL ISCHAEMIA
     Dosage: 7.5 MG, 1X/DAY
     Route: 048
  5. BISOPROLOL [Concomitant]
     Indication: CARDIAC FAILURE
  6. LOSARTAN [Concomitant]
     Indication: MYOCARDIAL ISCHAEMIA
     Dosage: 25 MG, 1X/DAY
     Route: 048
  7. LOSARTAN [Concomitant]
     Indication: CARDIAC FAILURE
  8. IVABRADINE [Concomitant]
     Indication: CARDIAC FAILURE
     Dosage: 5 MG, 2X/DAY
     Route: 048
  9. IVABRADINE [Concomitant]
     Indication: HEART RATE INCREASED
  10. IMDUR [Concomitant]
     Indication: ANGINA PECTORIS
     Dosage: 60 MG, 1X/DAY
     Route: 048
  11. ASPIRIN [Concomitant]
     Indication: MYOCARDIAL ISCHAEMIA
     Dosage: 75 MG, 1X/DAY
     Route: 048
  12. ASPIRIN [Concomitant]
     Indication: MYOCARDIAL INFARCTION
  13. ATORVASTATIN [Concomitant]
     Indication: MYOCARDIAL ISCHAEMIA
     Dosage: 40 MG, 1X/DAY AT NIGHT
     Route: 048
  14. ATORVASTATIN [Concomitant]
     Indication: MYOCARDIAL INFARCTION
  15. ATORVASTATIN [Concomitant]
     Indication: DIABETES MELLITUS
  16. METFORMIN [Concomitant]
     Indication: TYPE 2 DIABETES MELLITUS
     Dosage: 1 MG, 2X/DAY
     Route: 048
  17. SITAGLIPTIN [Concomitant]
     Indication: TYPE 2 DIABETES MELLITUS
     Dosage: 100 MG, 1X/DAY
     Route: 048
  18. GLICLAZIDE [Concomitant]
     Indication: TYPE 2 DIABETES MELLITUS
     Dosage: 160 MG, 2X/DAY
     Route: 048
  19. LANSOPRAZOLE [Concomitant]
     Dosage: 30 MG, 1X/DAY
     Route: 048
  20. EXENATIDE [Concomitant]
     Indication: TYPE 2 DIABETES MELLITUS
     Dosage: 10 UNITS, 2X/DAY
     Route: 058
  21. NOVOMIX [Concomitant]
     Indication: TYPE 2 DIABETES MELLITUS
     Dosage: UNK
     Route: 058

REACTIONS (8)
  - Renal failure acute [Recovering/Resolving]
  - Malaise [Not Recovered/Not Resolved]
  - Weight increased [Not Recovered/Not Resolved]
  - Urine output decreased [Not Recovered/Not Resolved]
  - Musculoskeletal pain [Not Recovered/Not Resolved]
  - Dyspnoea [Not Recovered/Not Resolved]
  - Vomiting [Not Recovered/Not Resolved]
  - Acute pulmonary oedema [Not Recovered/Not Resolved]
